FAERS Safety Report 6119104-0 (Version None)
Quarter: 2009Q1

REPORT INFORMATION
  Report Type: 
  Country: None (occurrence: None)
  Receive Date: 20090316
  Receipt Date: 20090310
  Transmission Date: 20090719
  Serious: Yes (Hospitalization)
  Sender: FDA-Public Use
  Company Number: DE-BAYER-200831341GPV

PATIENT
  Age: 56 Year
  Sex: Female

DRUGS (12)
  1. ALEMTUZUMAB [Suspect]
     Indication: T-CELL LYMPHOMA
     Route: 058
     Dates: start: 20080619, end: 20080828
  2. PREDNISONE [Suspect]
     Indication: T-CELL LYMPHOMA
     Route: 048
     Dates: start: 20080612, end: 20080827
  3. CYCLOPHOSPHAMIDE [Suspect]
     Indication: T-CELL LYMPHOMA
     Route: 042
     Dates: start: 20080619, end: 20080827
  4. DOXORUBICIN HCL [Suspect]
     Indication: T-CELL LYMPHOMA
     Route: 042
     Dates: start: 20080619, end: 20080827
  5. VINCRISTINE [Suspect]
     Indication: T-CELL LYMPHOMA
     Route: 042
     Dates: start: 20080619, end: 20080827
  6. PEGFILGRASTIM [Suspect]
     Indication: T-CELL LYMPHOMA
     Route: 058
     Dates: start: 20080623, end: 20080831
  7. CARMUSTINE [Suspect]
     Indication: T-CELL LYMPHOMA
     Route: 042
     Dates: start: 20080929, end: 20080929
  8. ETOPOSIDE [Suspect]
     Indication: T-CELL LYMPHOMA
     Route: 042
     Dates: start: 20080930, end: 20081003
  9. CYTARABINE [Suspect]
     Indication: T-CELL LYMPHOMA
     Route: 042
     Dates: start: 20080930, end: 20081003
  10. MELPHALAN [Suspect]
     Indication: T-CELL LYMPHOMA
     Route: 042
     Dates: start: 20081003, end: 20081030
  11. FLUCONAZOLE [Concomitant]
     Indication: PROPHYLAXIS
     Route: 048
     Dates: start: 20081002
  12. ACYCLOVIR [Concomitant]
     Indication: PROPHYLAXIS
     Route: 048
     Dates: start: 20080722

REACTIONS (5)
  - ASTHENIA [None]
  - BLOOD POTASSIUM DECREASED [None]
  - DIARRHOEA [None]
  - FATIGUE [None]
  - PYREXIA [None]
